FAERS Safety Report 7759640-4 (Version None)
Quarter: 2011Q3

REPORT INFORMATION
  Report Type: 
  Country: None (occurrence: None)
  Receive Date: 20110919
  Receipt Date: 20110908
  Transmission Date: 20111222
  Serious: Yes (Other)
  Sender: FDA-Public Use
  Company Number: ZA-ASTRAZENECA-2011SE54102

PATIENT

DRUGS (2)
  1. BUDESONIDE [Suspect]
     Indication: ASTHMA
     Dosage: 200-800 UG/DAY
     Route: 055
  2. BECLOMETHASONE DIPROPIONATE [Suspect]
     Indication: RHINITIS ALLERGIC
     Dosage: 100-400 UG/DAY
     Route: 045

REACTIONS (1)
  - HYPOTHALAMO-PITUITARY DISORDER [None]
